FAERS Safety Report 23369558 (Version 1)
Quarter: 2024Q1

REPORT INFORMATION
  Report Type: Spontaneous
  Country: ES (occurrence: ES)
  Receive Date: 20240105
  Receipt Date: 20240105
  Transmission Date: 20240410
  Serious: Yes (Other)
  Sender: FDA-Public Use
  Company Number: ES-PFM-2023-07235

PATIENT

DRUGS (15)
  1. ATROPINE [Suspect]
     Active Substance: ATROPINE\ATROPINE SULFATE
     Indication: Necrotising scleritis
     Dosage: UNK, BID (TWICE A DAY)
     Route: 065
  2. DOXYCYCLINE [Suspect]
     Active Substance: DOXYCYCLINE
     Indication: Necrotising scleritis
     Dosage: 100 MG EVERY 12 HOURS
     Route: 065
  3. DOXYCYCLINE [Suspect]
     Active Substance: DOXYCYCLINE
     Indication: Off label use
  4. METHOTREXATE [Suspect]
     Active Substance: METHOTREXATE
     Dosage: 12.5 MG PER WEEK
     Route: 058
  5. METHOTREXATE [Suspect]
     Active Substance: METHOTREXATE
     Indication: Necrotising scleritis
     Dosage: 7.5 MG PER WEEK
     Route: 058
  6. METHYLPREDNISOLONE SODIUM SUCCINATE [Suspect]
     Active Substance: METHYLPREDNISOLONE SODIUM SUCCINATE
     Dosage: 90 MG FOR THREE DAYS BOLUSES (1.5MG/ KG/DAY),
     Route: 065
  7. METHYLPREDNISOLONE SODIUM SUCCINATE [Suspect]
     Active Substance: METHYLPREDNISOLONE SODIUM SUCCINATE
     Indication: Necrotising scleritis
     Dosage: DAILY DOSE OF 60 MG FOR THREE DAYS (1MG/ KG/DAY),
     Route: 065
  8. MOXIFLOXACIN [Suspect]
     Active Substance: MOXIFLOXACIN
     Indication: Necrotising scleritis
     Dosage: UNK, Q4H (EVERY 4 HOURS)
     Route: 065
  9. PREDNISONE [Suspect]
     Active Substance: PREDNISONE
     Dosage: 10 MG/DAY
     Route: 065
  10. PREDNISONE [Suspect]
     Active Substance: PREDNISONE
     Indication: Necrotising scleritis
     Dosage: 30 MG/DAY
     Route: 065
  11. PREDNISONE [Suspect]
     Active Substance: PREDNISONE
     Dosage: 30 MG/DAY
     Route: 065
  12. PREDNISONE [Suspect]
     Active Substance: PREDNISONE
     Dosage: 7.5 MG/DAY
     Route: 065
  13. DEXAMETHASONE\TOBRAMYCIN [Suspect]
     Active Substance: DEXAMETHASONE\TOBRAMYCIN
     Indication: Necrotising scleritis
     Dosage: UNK, Q8H (EVERY 8HOURS)
     Route: 065
  14. ADALIMUMAB [Concomitant]
     Active Substance: ADALIMUMAB\ISOPROPYL ALCOHOL
     Indication: Inflammation
     Dosage: 40 MG EVERY SIX WEEKS
     Route: 058
  15. ADALIMUMAB [Concomitant]
     Active Substance: ADALIMUMAB\ISOPROPYL ALCOHOL
     Dosage: 80 MG
     Route: 058

REACTIONS (5)
  - Scleritis [Unknown]
  - Off label use [Unknown]
  - Condition aggravated [Unknown]
  - Blood glucose increased [Unknown]
  - Product use in unapproved indication [Unknown]
